FAERS Safety Report 8102128-1 (Version None)
Quarter: 2012Q1

REPORT INFORMATION
  Report Type: 
  Country: None (occurrence: None)
  Receive Date: 20120131
  Receipt Date: 20120125
  Transmission Date: 20120608
  Serious: Yes (Other)
  Sender: FDA-Public Use
  Company Number: PHHY2011TW79322

PATIENT
  Age: 78 Year
  Sex: Female

DRUGS (2)
  1. TRIAMCINOLONE ACETONIDE [Suspect]
     Indication: DETACHMENT OF RETINAL PIGMENT EPITHELIUM
     Dosage: 4 MG, UNK
  2. BEVACIZUMAB [Suspect]

REACTIONS (3)
  - VISUAL IMPAIRMENT [None]
  - RETINAL OEDEMA [None]
  - RETINAL PIGMENT EPITHELIAL TEAR [None]
